FAERS Safety Report 21403434 (Version 1)
Quarter: 2022Q4

REPORT INFORMATION
  Report Type: Report from Study
  Country: JP (occurrence: JP)
  Receive Date: 20221003
  Receipt Date: 20221003
  Transmission Date: 20230112
  Serious: Yes (Hospitalization)
  Sender: FDA-Public Use
  Company Number: JP-ABBVIE-4129561

PATIENT
  Age: 77 Year
  Sex: Male
  Weight: 80 kg

DRUGS (13)
  1. VENETOCLAX [Suspect]
     Active Substance: VENETOCLAX
     Indication: Myelodysplastic syndrome
     Dosage: DAYS 1 - 14 OF EACH 28-DAY CYCLE
     Route: 048
     Dates: start: 20201130
  2. HERBALS [Concomitant]
     Active Substance: HERBALS
     Indication: Constipation
     Dosage: TIME INTERVAL: AS NECESSARY
     Route: 048
     Dates: start: 201910
  3. FLUCONAZOLE [Concomitant]
     Active Substance: FLUCONAZOLE
     Indication: Infection prophylaxis
     Route: 048
     Dates: start: 20201119
  4. HEPARINOID [Concomitant]
     Indication: Drug eruption
     Route: 061
     Dates: start: 20201204
  5. CLOBETASOL PROPIONATE [Concomitant]
     Active Substance: CLOBETASOL PROPIONATE
     Indication: Drug eruption
     Route: 061
     Dates: start: 20201204
  6. NIFEDIPINE [Concomitant]
     Active Substance: NIFEDIPINE
     Indication: Angina pectoris
     Route: 048
     Dates: start: 20210928
  7. BRONUCK OPHTHARUMIC SOLUTION [Concomitant]
     Indication: Dry eye
     Route: 047
     Dates: start: 20211213
  8. AZACITIDINE [Suspect]
     Active Substance: AZACITIDINE
     Indication: Myelodysplastic syndrome
     Dosage: 7 DAYS WITHIN THE FIRST 9 CALENDAR DAYS OF EACH 28-DAY CYCLE
     Route: 058
     Dates: start: 20201130
  9. MAGNESIUM OXIDE TABLETS [Concomitant]
     Indication: Constipation
     Dosage: TIME INTERVAL: AS NECESSARY
     Route: 048
     Dates: start: 20201123
  10. VONOPRAZAN FUMARATE [Concomitant]
     Active Substance: VONOPRAZAN FUMARATE
     Indication: Prophylaxis against gastrointestinal ulcer
     Route: 048
     Dates: start: 20201121
  11. SEIKO [Concomitant]
     Indication: Constipation
     Dosage: TIME INTERVAL: AS NECESSARY
     Route: 048
     Dates: start: 20201121
  12. DIPHENHYDRAMINE [Concomitant]
     Active Substance: DIPHENHYDRAMINE
     Indication: Drug eruption
     Dosage: TIME INTERVAL: AS NECESSARY
     Route: 062
     Dates: start: 20201203
  13. HIRUDOID LOTION [Concomitant]
     Indication: Petechiae
     Dosage: TIME INTERVAL: AS NECESSARY
     Route: 061
     Dates: start: 20220410

REACTIONS (1)
  - Febrile neutropenia [Not Recovered/Not Resolved]

NARRATIVE: CASE EVENT DATE: 20220922
